FAERS Safety Report 24925272 (Version 1)
Quarter: 2025Q1

REPORT INFORMATION
  Report Type: Spontaneous
  Country: JP (occurrence: JP)
  Receive Date: 20250204
  Receipt Date: 20250204
  Transmission Date: 20250408
  Serious: No
  Sender: EXELIXIS
  Company Number: JP-TAKEDA-2024TJP008276

PATIENT
  Sex: Male

DRUGS (2)
  1. CABOMETYX [Suspect]
     Active Substance: CABOZANTINIB S-MALATE
     Indication: Hepatocellular carcinoma
     Route: 048
     Dates: start: 20231018
  2. CABOMETYX [Suspect]
     Active Substance: CABOZANTINIB S-MALATE
     Route: 048

REACTIONS (2)
  - Liver disorder [Recovered/Resolved]
  - Platelet count decreased [Recovered/Resolved]
